FAERS Safety Report 8139309-7 (Version None)
Quarter: 2012Q1

REPORT INFORMATION
  Report Type: 
  Country: None (occurrence: None)
  Receive Date: 20120215
  Receipt Date: 20120208
  Transmission Date: 20120608
  Serious: Yes (Hospitalization, Other)
  Sender: FDA-Public Use
  Company Number: PHHY2011JP101968

PATIENT
  Age: 55 Year
  Sex: Female
  Weight: 50 kg

DRUGS (4)
  1. AMLODIPINE [Suspect]
     Indication: HYPERTENSION
     Dosage: 5 MG, QD
  2. OLMESARTAN MEDOXOMIL [Suspect]
     Indication: HYPERTENSION
     Dosage: 10 MG, QD
  3. AMLODIPINE [Suspect]
     Dosage: 140 MG, UNK
  4. OLMESARTAN MEDOXOMIL [Suspect]
     Dosage: 180 MG, UNK

REACTIONS (4)
  - SUICIDE ATTEMPT [None]
  - DRUG LEVEL INCREASED [None]
  - HYPOTENSION [None]
  - OVERDOSE [None]
